FAERS Safety Report 4909812-9 (Version None)
Quarter: 2006Q1

REPORT INFORMATION
  Report Type: 
  Country: None (occurrence: None)
  Receive Date: 20060208
  Receipt Date: 20060126
  Transmission Date: 20060701
  Serious: Yes (Hospitalization)
  Sender: FDA-Public Use
  Company Number: FABR-11386

PATIENT
  Age: 59 Year
  Sex: Male
  Weight: 58.9676 kg

DRUGS (3)
  1. FABRAZYME [Suspect]
     Indication: FABRY'S DISEASE
     Dates: start: 20050720, end: 20050830
  2. FABRAZYME [Suspect]
     Indication: FABRY'S DISEASE
     Dosage: 1 MG/KG Q2WKS IV
     Route: 042
     Dates: start: 20040123, end: 20050610
  3. FABRAZYME [Suspect]
     Indication: FABRY'S DISEASE
     Dosage: 1 MG/KG Q2WKS IV
     Route: 042
     Dates: start: 20020614, end: 20040115

REACTIONS (12)
  - ATRIAL FIBRILLATION [None]
  - BLOOD PRESSURE INCREASED [None]
  - CARDIAC VENTRICULAR DISORDER [None]
  - CONDITION AGGRAVATED [None]
  - DEAFNESS [None]
  - MYOCARDIAL INFARCTION [None]
  - NAUSEA [None]
  - POST PROCEDURAL COMPLICATION [None]
  - SCAR [None]
  - URINARY RETENTION [None]
  - VOMITING [None]
  - WEIGHT DECREASED [None]
